FAERS Safety Report 4627925-6 (Version None)
Quarter: 2005Q2

REPORT INFORMATION
  Report Type: 
  Country: None (occurrence: None)
  Receive Date: 20050404
  Receipt Date: 20050404
  Transmission Date: 20051028
  Serious: Yes (Life-Threatening, Hospitalization)
  Sender: FDA-Public Use
  Company Number: None

PATIENT
  Age: 56 Year
  Sex: Female
  Weight: 83.3 kg

DRUGS (6)
  1. EXCEDRIN 250/250/65 [Suspect]
     Indication: HEADACHE
     Dates: start: 20000701, end: 20050315
  2. BENICAR [Concomitant]
  3. ATENOLOL [Concomitant]
  4. LASIX [Concomitant]
  5. ZANTAC [Concomitant]
  6. EXCEDRIN (MIGRAINE) [Concomitant]

REACTIONS (1)
  - UPPER GASTROINTESTINAL HAEMORRHAGE [None]
